FAERS Safety Report 25963251 (Version 3)
Quarter: 2025Q4

REPORT INFORMATION
  Report Type: Spontaneous
  Country: GB (occurrence: GB)
  Receive Date: 20251027
  Receipt Date: 20251215
  Transmission Date: 20260117
  Serious: Yes (Life-Threatening, Hospitalization, Other)
  Sender: PFIZER
  Company Number: GB-PFIZER INC-202500209427

PATIENT
  Age: 78 Year
  Sex: Male
  Weight: 60 kg

DRUGS (12)
  1. ELREXFIO [Suspect]
     Active Substance: ELRANATAMAB-BCMM
     Indication: Plasma cell myeloma refractory
     Dosage: DAY 1, CYCLE 1
     Route: 058
     Dates: start: 20250923, end: 20250923
  2. ELREXFIO [Suspect]
     Active Substance: ELRANATAMAB-BCMM
     Dosage: DAY 4, CYCLE 1
     Route: 058
     Dates: start: 20250926, end: 20250926
  3. ELREXFIO [Suspect]
     Active Substance: ELRANATAMAB-BCMM
     Dosage: DAY 8, CYCLE 1
     Route: 058
     Dates: start: 20250930, end: 20250930
  4. ELREXFIO [Suspect]
     Active Substance: ELRANATAMAB-BCMM
     Dosage: DAY 15, CYCLE 1
     Route: 058
     Dates: start: 20251007, end: 20251007
  5. ELREXFIO [Suspect]
     Active Substance: ELRANATAMAB-BCMM
     Dosage: DAY 22, CYCLE 1
     Route: 058
     Dates: start: 20251014, end: 20251014
  6. ATORVASTATIN [Concomitant]
     Active Substance: ATORVASTATIN
     Dosage: 20 MG, 1X/DAY
  7. CANAGLIFLOZIN [Concomitant]
     Active Substance: CANAGLIFLOZIN
     Dosage: 300 MG, 1X/DAY
  8. LANSOPRAZOLE [Concomitant]
     Active Substance: LANSOPRAZOLE
     Dosage: 30 MG, 1X/DAY
  9. METFORMIN [Concomitant]
     Active Substance: METFORMIN HYDROCHLORIDE
     Dosage: 1 G, 2X/DAY
  10. TAMSULOSIN SR [Concomitant]
     Dosage: 400 MG, 1X/DAY
  11. ACYCLOVIR [Concomitant]
     Active Substance: ACYCLOVIR
     Dosage: 400 MG, 2X/DAY
  12. SULFAMETHOXAZOLE\TRIMETHOPRIM [Concomitant]
     Active Substance: SULFAMETHOXAZOLE\TRIMETHOPRIM
     Dosage: 960 MG M/W/FRI

REACTIONS (4)
  - Cytokine release syndrome [Recovered/Resolved]
  - Xerosis [Recovering/Resolving]
  - Peripheral swelling [Recovered/Resolved]
  - Pain in extremity [Recovering/Resolving]

NARRATIVE: CASE EVENT DATE: 20250101
